FAERS Safety Report 11562789 (Version 1)
Quarter: 2015Q3

REPORT INFORMATION
  Report Type: Spontaneous
  Country: US (occurrence: US)
  Receive Date: 20150928
  Receipt Date: 20150928
  Transmission Date: 20151125
  Serious: No
  Sender: FDA-Public Use
  Company Number: US-COREPHARMA LLC-2014COR00072

PATIENT
  Sex: Male

DRUGS (1)
  1. DEXTROAMPHET SACCHARAT, AMPHET ASPARTATE, DEXTROAMPHET SULFATE AND AMPHET SULFAT [Suspect]
     Active Substance: AMPHETAMINE ASPARTATE\AMPHETAMINE SULFATE\DEXTROAMPHETAMINE SACCHARATE\DEXTROAMPHETAMINE SULFATE
     Dosage: UNK MG, UNK
     Dates: start: 20140810

REACTIONS (6)
  - Asthenia [Unknown]
  - Thinking abnormal [Unknown]
  - Drug effect incomplete [Unknown]
  - Product substitution issue [Unknown]
  - Apathy [Unknown]
  - Somnolence [Unknown]

NARRATIVE: CASE EVENT DATE: 2014
